FAERS Safety Report 13968149 (Version 1)
Quarter: 2017Q3

REPORT INFORMATION
  Report Type: Report from Study
  Country: US (occurrence: US)
  Receive Date: 20170914
  Receipt Date: 20170914
  Transmission Date: 20171128
  Serious: Yes (Hospitalization, Other)
  Sender: FDA-Public Use
  Company Number: US-BAYER-2017-170979

PATIENT
  Sex: Female

DRUGS (2)
  1. GADOLINIUM [Suspect]
     Active Substance: GADOLINIUM
     Indication: NUCLEAR MAGNETIC RESONANCE IMAGING
     Dosage: UNK UNK, ONCE
     Dates: start: 2010
  2. GADOLINIUM [Suspect]
     Active Substance: GADOLINIUM
     Indication: NUCLEAR MAGNETIC RESONANCE IMAGING
     Dosage: UNK
     Dates: start: 2012

REACTIONS (48)
  - Contrast media deposition [None]
  - Pain [None]
  - Burning sensation [None]
  - Hypoaesthesia [None]
  - Sleep disorder [None]
  - Dizziness [None]
  - Balance disorder [None]
  - Anxiety [None]
  - Bone disorder [None]
  - Body temperature decreased [None]
  - Alopecia [None]
  - Muscle twitching [None]
  - Post procedural haematoma [None]
  - Skin texture abnormal [None]
  - Myalgia [None]
  - Injection site pain [None]
  - Disturbance in attention [None]
  - Pruritus [None]
  - Jaundice [None]
  - Adrenal disorder [None]
  - Injury [None]
  - Limb injury [None]
  - Inflammation [None]
  - Headache [None]
  - Arthralgia [None]
  - Chills [None]
  - Hypothyroidism [None]
  - Multiple chemical sensitivity [None]
  - Joint swelling [None]
  - Dysgeusia [None]
  - Scratch [None]
  - Muscle spasms [None]
  - Hypotension [None]
  - Paraesthesia [None]
  - Parosmia [None]
  - Fatigue [None]
  - Muscle atrophy [None]
  - Nausea [None]
  - Onychoclasis [None]
  - Amnesia [None]
  - Visual impairment [None]
  - Speech disorder [None]
  - Mental impairment [None]
  - Fall [None]
  - Asthenia [None]
  - Tremor [None]
  - Dyspnoea [None]
  - Skin lesion [None]
